FAERS Safety Report 4701931-5 (Version None)
Quarter: 2005Q2

REPORT INFORMATION
  Report Type: 
  Country: None (occurrence: None)
  Receive Date: 20050627
  Receipt Date: 20050613
  Transmission Date: 20051028
  Serious: Yes (Other)
  Sender: FDA-Public Use
  Company Number: 2005087929

PATIENT
  Age: 2 Year
  Sex: Male

DRUGS (2)
  1. BENADRYL [Suspect]
     Indication: HYPERSENSITIVITY
     Dosage: 2 TSP X2 WITHIN 3 + 1/2 HOURS, 2 TSP QD, ORAL
     Route: 048
     Dates: start: 20050610, end: 20050615
  2. MONTELUKAST SODIUM (MONTELUKAST SODIUM) [Concomitant]

REACTIONS (3)
  - DYSPNOEA [None]
  - SOMNOLENCE [None]
  - STOMACH DISCOMFORT [None]
